FAERS Safety Report 17865996 (Version 3)
Quarter: 2021Q3

REPORT INFORMATION
  Report Type: Report from Study
  Country: US (occurrence: US)
  Receive Date: 20200605
  Receipt Date: 20210924
  Transmission Date: 20211014
  Serious: Yes (Hospitalization, Other)
  Sender: FDA-Public Use
  Company Number: US-SA-2020SA143410

PATIENT
  Age: 61 Year
  Sex: Female
  Weight: 79.37 kg

DRUGS (20)
  1. EPINEPHRINE. [Concomitant]
     Active Substance: EPINEPHRINE
     Dosage: UNK
  2. ALAVERT ALLERGY [Concomitant]
     Active Substance: LORATADINE
     Dosage: UNK
  3. AZELASTINE HCL [Concomitant]
     Active Substance: AZELASTINE HYDROCHLORIDE
     Dosage: UNK
  4. ESZOPICLONE. [Concomitant]
     Active Substance: ESZOPICLONE
     Dosage: UNK
  5. PREDNISONE. [Concomitant]
     Active Substance: PREDNISONE
  6. DUPILUMAB [Suspect]
     Active Substance: DUPILUMAB
     Indication: ASTHMA
     Dosage: 600 MG, 1X
     Route: 058
     Dates: start: 20191220, end: 20191220
  7. DUONEB [Concomitant]
     Active Substance: ALBUTEROL SULFATE\IPRATROPIUM BROMIDE
     Dosage: UNK
  8. PROAIR HFA [Concomitant]
     Active Substance: ALBUTEROL SULFATE
     Dosage: UNK
  9. FLONASE [MOMETASONE FUROATE] [Concomitant]
     Active Substance: MOMETASONE FUROATE
     Dosage: UNK
  10. ATROVENT [Concomitant]
     Active Substance: IPRATROPIUM BROMIDE
     Dosage: UNK
  11. INCRUSE ELLIPTA [Concomitant]
     Active Substance: UMECLIDINIUM BROMIDE
     Dosage: UNK
  12. IPRATROPIUM BROMIDE. [Concomitant]
     Active Substance: IPRATROPIUM BROMIDE
     Dosage: UNK
  13. PRAMIPEXOLE DIHYDROCHLORIDE. [Concomitant]
     Active Substance: PRAMIPEXOLE DIHYDROCHLORIDE
     Dosage: UNK
  14. SYMBICORT [Concomitant]
     Active Substance: BUDESONIDE\FORMOTEROL FUMARATE DIHYDRATE
     Dosage: UNK
  15. DUPILUMAB [Suspect]
     Active Substance: DUPILUMAB
     Dosage: 300 MG, QOW
     Route: 058
     Dates: start: 20200130
  16. GUAIFENESIN. [Concomitant]
     Active Substance: GUAIFENESIN
     Dosage: UNK
  17. PLAQUENIL [Concomitant]
     Active Substance: HYDROXYCHLOROQUINE SULFATE
     Dosage: UNK
  18. CYMBALTA [Concomitant]
     Active Substance: DULOXETINE HYDROCHLORIDE
  19. CLONAZEPAM. [Concomitant]
     Active Substance: CLONAZEPAM
     Dosage: UNK
  20. MONTELUKAST SODIUM. [Concomitant]
     Active Substance: MONTELUKAST SODIUM
     Dosage: UNK

REACTIONS (28)
  - Injection site urticaria [Not Recovered/Not Resolved]
  - Injection site erythema [Not Recovered/Not Resolved]
  - Injection site mass [Recovered/Resolved]
  - Pneumothorax [Unknown]
  - Injection site discolouration [Not Recovered/Not Resolved]
  - Injection site swelling [Unknown]
  - Neuralgia [Not Recovered/Not Resolved]
  - Erythema [Not Recovered/Not Resolved]
  - Condition aggravated [Not Recovered/Not Resolved]
  - Respiratory failure [Not Recovered/Not Resolved]
  - Injection site bruising [Not Recovered/Not Resolved]
  - Connective tissue disorder [Unknown]
  - Rash papular [Not Recovered/Not Resolved]
  - Product use issue [Unknown]
  - Condition aggravated [Unknown]
  - Lactic acidosis [Not Recovered/Not Resolved]
  - Ehlers-Danlos syndrome [Not Recovered/Not Resolved]
  - Injection site pain [Recovered/Resolved]
  - Lack of injection site rotation [Not Recovered/Not Resolved]
  - Thoracic operation [Unknown]
  - Pneumonia [Recovered/Resolved]
  - Asthma [Recovered/Resolved]
  - Abscess fungal [Unknown]
  - Cartilage injury [Unknown]
  - Tracheomalacia [Not Recovered/Not Resolved]
  - Parainfluenzae virus infection [Recovered/Resolved]
  - Dyspnoea [Recovering/Resolving]
  - Tracheal operation [Unknown]

NARRATIVE: CASE EVENT DATE: 20191220
